FAERS Safety Report 8218278-5 (Version None)
Quarter: 2012Q1

REPORT INFORMATION
  Report Type: 
  Country: None (occurrence: None)
  Receive Date: 20120316
  Receipt Date: 20120316
  Transmission Date: 20120608
  Serious: Yes (Other)
  Sender: FDA-Public Use
  Company Number: None

PATIENT
  Age: 42 Year
  Sex: Female
  Weight: 97.7 kg

DRUGS (1)
  1. MIRENA [Suspect]
     Dates: start: 20101001

REACTIONS (10)
  - ABDOMINAL DISTENSION [None]
  - DYSMENORRHOEA [None]
  - BACK PAIN [None]
  - WEIGHT INCREASED [None]
  - ACNE [None]
  - BREAST PAIN [None]
  - PELVIC PAIN [None]
  - BREAST TENDERNESS [None]
  - MUSCLE SPASMS [None]
  - SCIATICA [None]
